FAERS Safety Report 9399359 (Version 1)
Quarter: 2013Q3

REPORT INFORMATION
  Report Type: Spontaneous
  Country: US (occurrence: None)
  Receive Date: 20130709
  Receipt Date: 20130709
  Transmission Date: 20140515
  Serious: Yes (Hospitalization)
  Sender: FDA-Public Use
  Company Number: 2013P1011123

PATIENT
  Age: 66 Year
  Sex: Male

DRUGS (1)
  1. INFUMORPH [Suspect]
     Route: 037

REACTIONS (3)
  - Device occlusion [None]
  - Overdose [None]
  - Device malfunction [None]
